FAERS Safety Report 15826188 (Version 5)
Quarter: 2019Q3

REPORT INFORMATION
  Report Type: Spontaneous
  Country: JP (occurrence: JP)
  Receive Date: 20190115
  Receipt Date: 20190708
  Transmission Date: 20191004
  Serious: Yes (Other)
  Sender: FDA-Public Use
  Company Number: JP-BIOVERATIV-2019SA005296AA

PATIENT
  Age: 26 Year
  Sex: Male
  Weight: 62.5 kg

DRUGS (5)
  1. ALPROLIX [Suspect]
     Active Substance: EFTRENONACOG ALFA
     Dosage: 3000 U, 1X
     Route: 042
     Dates: start: 20190102, end: 20190102
  2. ALPROLIX [Suspect]
     Active Substance: EFTRENONACOG ALFA
     Indication: FACTOR IX DEFICIENCY
     Dosage: 4000 U, QW
     Route: 042
     Dates: start: 20190119, end: 20190308
  3. ALPROLIX [Suspect]
     Active Substance: EFTRENONACOG ALFA
     Dosage: 4000 U, 1X
     Route: 042
     Dates: start: 20190214, end: 20190214
  4. ALPROLIX [Suspect]
     Active Substance: EFTRENONACOG ALFA
     Indication: FACTOR IX DEFICIENCY
     Dosage: 3000 U, QW
     Route: 042
     Dates: start: 20180823, end: 20190119
  5. ALPROLIX [Suspect]
     Active Substance: EFTRENONACOG ALFA
     Dosage: 4000 U, 1X
     Route: 042
     Dates: start: 20190221, end: 20190221

REACTIONS (5)
  - Haemarthrosis [Recovered/Resolved]
  - Haemorrhage subcutaneous [Unknown]
  - Melaena [Recovered/Resolved]
  - Haemarthrosis [Recovered/Resolved]
  - Melaena [Recovered/Resolved]

NARRATIVE: CASE EVENT DATE: 20190102
